FAERS Safety Report 5887401-X (Version None)
Quarter: 2008Q3

REPORT INFORMATION
  Report Type: 
  Country: None (occurrence: None)
  Receive Date: 20080915
  Receipt Date: 20080911
  Transmission Date: 20090109
  Serious: Yes (Death, Other)
  Sender: FDA-Public Use
  Company Number: CERZ-1000312

PATIENT
  Age: 78 Year
  Sex: Male
  Weight: 105 kg

DRUGS (1)
  1. CEREZYME [Suspect]
     Indication: GAUCHER'S DISEASE
     Dosage: 6600 U, Q2W, INTRAVENOUS
     Route: 042
     Dates: start: 20031113, end: 20080813

REACTIONS (1)
  - METASTATIC MALIGNANT MELANOMA [None]
